FAERS Safety Report 6573151-3 (Version None)
Quarter: 2010Q1

REPORT INFORMATION
  Report Type: 
  Country: None (occurrence: None)
  Receive Date: 20100208
  Receipt Date: 20100201
  Transmission Date: 20100710
  Serious: No
  Sender: FDA-Public Use
  Company Number: US-ELI_LILLY_AND_COMPANY-US200911005884

PATIENT
  Age: 25 Year
  Sex: Female
  Weight: 68.934 kg

DRUGS (8)
  1. ADCIRCA [Suspect]
     Indication: PULMONARY HYPERTENSION
     Dosage: 40 MG, UNK
  2. HYDROCHLOROTHIAZIDE [Concomitant]
     Dosage: 25 MG, DAILY (1/D)
     Route: 048
  3. KLOR-CON [Concomitant]
     Dosage: 20 MEQ, 3/D
     Route: 048
  4. OMEPRAZOLE [Concomitant]
     Dosage: 40 MG, DAILY (1/D)
     Route: 048
  5. WARFARIN SODIUM [Concomitant]
     Dosage: 5 MG, DAILY (1/D)
  6. ASPIRIN [Concomitant]
     Dosage: 81 MG, DAILY (1/D)
     Route: 048
  7. LORAZEPAM [Concomitant]
     Dosage: 0.5 MG, AS NEEDED
  8. TRAMADOL [Concomitant]
     Dosage: 50 MG, AS NEEDED
     Route: 048

REACTIONS (7)
  - ARTHRALGIA [None]
  - DIZZINESS [None]
  - HEADACHE [None]
  - MYALGIA [None]
  - NAUSEA [None]
  - VISION BLURRED [None]
  - VOMITING [None]
